APPROVED DRUG PRODUCT: SANDIMMUNE
Active Ingredient: CYCLOSPORINE
Strength: 100MG/ML
Dosage Form/Route: SOLUTION;ORAL
Application: N050574 | Product #001
Applicant: NOVARTIS PHARMACEUTICALS CORP
Approved: Nov 14, 1983 | RLD: Yes | RS: Yes | Type: RX